FAERS Safety Report 22171152 (Version 2)
Quarter: 2023Q2

REPORT INFORMATION
  Report Type: Spontaneous
  Country: JP (occurrence: JP)
  Receive Date: 20230404
  Receipt Date: 20230523
  Transmission Date: 20230722
  Serious: Yes (Life-Threatening)
  Sender: FDA-Public Use
  Company Number: JP-DSJP-DSJ-2023-112493

PATIENT
  Age: 78 Year
  Sex: Female

DRUGS (6)
  1. DENOSUMAB [Suspect]
     Active Substance: DENOSUMAB
     Indication: Bone giant cell tumour
     Dosage: 120 MILLIGRAM, Q4WK
     Route: 058
     Dates: start: 20190207
  2. BROTIZOLAM [Concomitant]
     Active Substance: BROTIZOLAM
     Dosage: 0.25 MG, QD
     Route: 048
     Dates: start: 20190207
  3. TRAMCET [Concomitant]
     Active Substance: ACETAMINOPHEN\TRAMADOL
     Dosage: UNK, BID
     Route: 048
     Dates: start: 20190207
  4. CALCIUM CARBONATE\CHOLECALCIFEROL\MAGNESIUM CARBONATE [Concomitant]
     Active Substance: CALCIUM CARBONATE\CHOLECALCIFEROL\MAGNESIUM CARBONATE
     Dosage: UNK UNK, BID
     Route: 048
     Dates: start: 20190207
  5. REBAMIPIDE [Concomitant]
     Active Substance: REBAMIPIDE
     Dosage: 100 MILLIGRAM, TID
     Route: 048
     Dates: start: 20190207
  6. CALONAL [Concomitant]
     Active Substance: ACETAMINOPHEN
     Dosage: 200 MG, QD
     Route: 048
     Dates: start: 20190207

REACTIONS (1)
  - Bone giant cell tumour malignant [Recovering/Resolving]

NARRATIVE: CASE EVENT DATE: 20220707
